FAERS Safety Report 18257641 (Version 1)
Quarter: 2020Q3

REPORT INFORMATION
  Report Type: Spontaneous
  Country: ZA (occurrence: ZA)
  Receive Date: 20200911
  Receipt Date: 20200911
  Transmission Date: 20201103
  Serious: Yes (Other)
  Sender: FDA-Public Use
  Company Number: ZA-PFIZER INC-2020350954

PATIENT
  Age: 30 Year
  Sex: Female

DRUGS (2)
  1. CYCLOGEST [Suspect]
     Active Substance: PROGESTERONE
     Indication: ABORTION THREATENED
     Dosage: 200 MG, DAILY
     Route: 067
  2. CYTOTEC [Suspect]
     Active Substance: MISOPROSTOL
     Indication: ABORTION THREATENED
     Dosage: 200 UG, DAILY
     Route: 067
     Dates: start: 20200901, end: 20200901

REACTIONS (6)
  - Wrong product administered [Unknown]
  - Foetal death [Not Recovered/Not Resolved]
  - Product use in unapproved indication [Unknown]
  - Muscle spasms [Not Recovered/Not Resolved]
  - Product dispensing error [Unknown]
  - Uterine haemorrhage [Not Recovered/Not Resolved]
